FAERS Safety Report 5202455-1 (Version None)
Quarter: 2006Q4

REPORT INFORMATION
  Report Type: 
  Country: None (occurrence: None)
  Receive Date: 20061010
  Receipt Date: 20050930
  Transmission Date: 20070319
  Serious: Yes (Hospitalization)
  Sender: FDA-Public Use
  Company Number: 2005P1000467

PATIENT
  Age: 64 Year
  Sex: Male
  Weight: 94 kg

DRUGS (9)
  1. RETEPLASE (RETEPLASE) [Suspect]
     Indication: ACUTE MYOCARDIAL INFARCTION
     Dosage: IV
     Route: 042
     Dates: start: 20050903
  2. ABCIXIMAB (ABCIXIMAB) [Suspect]
     Indication: MYOCARDIAL INFARCTION
     Dosage: IV
     Route: 042
     Dates: start: 20050903
  3. ASPIRIN [Concomitant]
  4. CLOPIDOGREL [Concomitant]
  5. FUROSEMIDE [Concomitant]
  6. METOPROLOL SUCCINATE [Concomitant]
  7. SIMVASTATIN [Concomitant]
  8. PANTOPRAZOLE SODIUM [Concomitant]
  9. CABASALATE CALCIUM [Concomitant]

REACTIONS (1)
  - MYOCARDIAL INFARCTION [None]
